FAERS Safety Report 6060781-0 (Version None)
Quarter: 2009Q1

REPORT INFORMATION
  Report Type: 
  Country: None (occurrence: None)
  Receive Date: 20090202
  Receipt Date: 20090119
  Transmission Date: 20090719
  Serious: Yes (Other)
  Sender: FDA-Public Use
  Company Number: PHHY2009DE02145

PATIENT
  Sex: Female
  Weight: 65 kg

DRUGS (1)
  1. VOLTAREN [Suspect]
     Dosage: 25 MG, ONCE/SINGLE
     Route: 048

REACTIONS (2)
  - MOVEMENT DISORDER [None]
  - NERVOUS SYSTEM DISORDER [None]
